FAERS Safety Report 25640452 (Version 1)
Quarter: 2025Q3

REPORT INFORMATION
  Report Type: Spontaneous
  Country: IR (occurrence: IR)
  Receive Date: 20250804
  Receipt Date: 20250804
  Transmission Date: 20251021
  Serious: Yes (Hospitalization)
  Sender: MYLAN
  Company Number: IR-MYLANLABS-2025M1066034

PATIENT
  Age: 53 Year
  Sex: Male

DRUGS (3)
  1. ALPRAZOLAM [Suspect]
     Active Substance: ALPRAZOLAM
     Indication: Product used for unknown indication
  2. CLONAZEPAM [Suspect]
     Active Substance: CLONAZEPAM
     Indication: Product used for unknown indication
     Dosage: 10 MILLIGRAM, QD
  3. HALOPERIDOL [Suspect]
     Active Substance: HALOPERIDOL
     Indication: Antipsychotic therapy

REACTIONS (3)
  - Drug dependence [Unknown]
  - Neuroleptic malignant syndrome [Recovered/Resolved]
  - Withdrawal syndrome [Recovered/Resolved]
